FAERS Safety Report 6577658-4 (Version None)
Quarter: 2010Q1

REPORT INFORMATION
  Report Type: 
  Country: None (occurrence: None)
  Receive Date: 20100211
  Receipt Date: 20100202
  Transmission Date: 20100710
  Serious: Yes (Hospitalization)
  Sender: FDA-Public Use
  Company Number: PHEH2010US01034

PATIENT
  Sex: Male

DRUGS (1)
  1. NEORAL [Suspect]
     Dosage: 50 MG, Q12H
     Route: 048
     Dates: start: 20090915

REACTIONS (1)
  - LIVER TRANSPLANT [None]
